FAERS Safety Report 9283645 (Version 3)
Quarter: 2013Q3

REPORT INFORMATION
  Report Type: Spontaneous
  Country: US (occurrence: US)
  Receive Date: 20130510
  Receipt Date: 20130814
  Transmission Date: 20140515
  Serious: Yes (Hospitalization)
  Sender: FDA-Public Use
  Company Number: US-GLAXOSMITHKLINE-A0744704A

PATIENT
  Age: 90 Year
  Sex: Female
  Weight: 68.2 kg

DRUGS (5)
  1. COREG CR [Suspect]
     Indication: HYPERTENSION
     Dosage: 10MG PER DAY
     Route: 048
     Dates: start: 200812, end: 2013
  2. AVAPRO [Concomitant]
  3. UNKNOWN MEDICATION [Concomitant]
  4. BABY ASPIRIN [Concomitant]
  5. NORVASC [Concomitant]

REACTIONS (4)
  - Blood pressure increased [Recovering/Resolving]
  - Dizziness [Recovering/Resolving]
  - Bronchitis [Recovering/Resolving]
  - Drug ineffective [Recovering/Resolving]
